FAERS Safety Report 9277055 (Version 2)
Quarter: 2013Q2

REPORT INFORMATION
  Report Type: Spontaneous
  Country: US (occurrence: US)
  Receive Date: 20130507
  Receipt Date: 20130520
  Transmission Date: 20140414
  Serious: Yes (Hospitalization)
  Sender: FDA-Public Use
  Company Number: US-BAXTER-2013BAX012914

PATIENT
  Age: 68 Year
  Sex: Male

DRUGS (5)
  1. DIANEAL LOW CALCIUM [Suspect]
     Indication: PERITONEAL DIALYSIS
     Route: 033
  2. DIANEAL LOW CALCIUM [Suspect]
     Indication: WEIGHT DECREASED
  3. DIANEAL LOW CALCIUM [Suspect]
     Indication: PERITONEAL DIALYSIS
     Route: 033
     Dates: start: 20120219
  4. DIANEAL LOW CALCIUM (ULTRABAG) [Suspect]
     Indication: PERITONEAL DIALYSIS
     Route: 033
     Dates: start: 20120219
  5. EXTRANEAL [Suspect]
     Indication: PERITONEAL DIALYSIS
     Route: 033
     Dates: start: 20120219

REACTIONS (10)
  - Sepsis [Not Recovered/Not Resolved]
  - Staphylococcal infection [Not Recovered/Not Resolved]
  - Diabetic foot infection [Unknown]
  - Weight decreased [Recovered/Resolved]
  - Hypophagia [Not Recovered/Not Resolved]
  - Peritoneal dialysis complication [Unknown]
  - Nausea [Not Recovered/Not Resolved]
  - Fluid retention [Unknown]
  - Hypotension [Not Recovered/Not Resolved]
  - Abdominal distension [Unknown]
